FAERS Safety Report 24862618 (Version 1)
Quarter: 2025Q1

REPORT INFORMATION
  Report Type: Spontaneous
  Country: US (occurrence: US)
  Receive Date: 20250120
  Receipt Date: 20250120
  Transmission Date: 20250408
  Serious: Yes (Death, Other)
  Sender: AUROBINDO
  Company Number: US-AUROBINDO-AUR-APL-2025-003230

PATIENT
  Age: 62 Year
  Sex: Male

DRUGS (5)
  1. MELPHALAN [Suspect]
     Active Substance: MELPHALAN
     Indication: Autologous haematopoietic stem cell transplant
     Route: 065
  2. URSODIOL [Suspect]
     Active Substance: URSODIOL
     Indication: Venoocclusive liver disease
     Route: 065
  3. URSODIOL [Suspect]
     Active Substance: URSODIOL
     Indication: Venoocclusive disease
  4. DEFIBROTIDE [Suspect]
     Active Substance: DEFIBROTIDE (BOVINE)
     Indication: Venoocclusive liver disease
     Route: 065
  5. DEFIBROTIDE [Suspect]
     Active Substance: DEFIBROTIDE (BOVINE)
     Indication: Venoocclusive disease

REACTIONS (2)
  - Drug ineffective [Fatal]
  - Drug-induced liver injury [Unknown]
